FAERS Safety Report 23875213 (Version 1)
Quarter: 2024Q2

REPORT INFORMATION
  Report Type: Spontaneous
  Country: US (occurrence: US)
  Receive Date: 20240520
  Receipt Date: 20240520
  Transmission Date: 20240716
  Serious: No
  Sender: FDA-Public Use
  Company Number: US-FOUNDATIONCONSUMERHC-2024-US-015992

PATIENT
  Sex: Female
  Weight: 81.65 kg

DRUGS (1)
  1. PLAN B ONE-STEP [Suspect]
     Active Substance: LEVONORGESTREL
     Indication: Product used for unknown indication
     Dosage: 1.5MG, ONCE
     Route: 048
     Dates: start: 2022, end: 2022

REACTIONS (1)
  - Menstruation irregular [Recovered/Resolved]

NARRATIVE: CASE EVENT DATE: 20220101
